FAERS Safety Report 7650175-6 (Version None)
Quarter: 2011Q3

REPORT INFORMATION
  Report Type: 
  Country: None (occurrence: None)
  Receive Date: 20110802
  Receipt Date: 20110728
  Transmission Date: 20111222
  Serious: Yes (Hospitalization)
  Sender: FDA-Public Use
  Company Number: US-ROCHE-780021

PATIENT
  Age: 75 Year
  Sex: Female
  Weight: 81.4 kg

DRUGS (22)
  1. TORSEMIDE [Suspect]
     Indication: CARDIAC FAILURE CONGESTIVE
     Route: 048
     Dates: start: 20110303, end: 20110319
  2. VISIPAQUE [Suspect]
     Dosage: FORM: DYE. FREQ: SINGLE
     Route: 042
     Dates: start: 20110317, end: 20110317
  3. METOPROLOL TARTRATE [Concomitant]
     Dates: start: 20110303
  4. POTASSIUM CHLORIDE [Concomitant]
     Dates: start: 20110303, end: 20110319
  5. GABAPENTIN [Concomitant]
     Dates: start: 20110303
  6. TIOTROPIUM [Concomitant]
     Dates: start: 20110303
  7. DILTIAZEM [Concomitant]
     Dates: start: 20110303, end: 20110315
  8. CLOPIDOGREL [Suspect]
     Indication: PERCUTANEOUS CORONARY INTERVENTION
     Dosage: FORM: BOLUS AND CAPSULE. ROUTE: ORAL AND INTRAVENOUS
     Route: 050
     Dates: start: 20110317, end: 20110317
  9. ALBUTEROL SULFATE AUTOHALER [Concomitant]
     Dates: start: 20110303
  10. ROPINIROLE [Concomitant]
     Dates: start: 20110303
  11. ASPIRIN [Concomitant]
     Dates: start: 20110314
  12. METOLAZONE [Suspect]
     Indication: CARDIAC FAILURE CONGESTIVE
     Route: 048
     Dates: start: 20110303, end: 20110319
  13. CLOPIDOGREL [Suspect]
     Route: 050
  14. METFORMIN HCL [Concomitant]
     Dates: start: 20110303
  15. SIMVASTATIN [Concomitant]
     Dates: start: 20110303
  16. HEPARIN [Concomitant]
     Dates: start: 20110314, end: 20110320
  17. CANGRELOR [Suspect]
     Indication: PERCUTANEOUS CORONARY INTERVENTION
     Dosage: FORM: BOLUS AND CAPSULE. ROUTE: ORAL AND INTRAVENOUS
     Route: 050
     Dates: start: 20110317, end: 20110317
  18. ALLOPURINOL [Concomitant]
     Dates: start: 20110303
  19. GLIPIZIDE [Concomitant]
     Dates: start: 20100303
  20. NAPROXEN [Suspect]
     Indication: MUSCULOSKELETAL PAIN
     Route: 048
     Dates: start: 20110303, end: 20110318
  21. WARFARIN SODIUM [Concomitant]
     Dates: start: 20110303
  22. BIVALIRUDINE [Concomitant]

REACTIONS (5)
  - VOMITING [None]
  - CHEST PAIN [None]
  - RENAL FAILURE ACUTE [None]
  - DIARRHOEA [None]
  - NAUSEA [None]
